FAERS Safety Report 8052623 (Version 2)
Quarter: 2013Q3

REPORT INFORMATION
  Report Type: Spontaneous
  Country: US (occurrence: US)
  Receive Date: 20110725
  Receipt Date: 20130823
  Transmission Date: 20140515
  Serious: Yes (Hospitalization)
  Sender: FDA-Public Use
  Company Number: US-BRISTOL-MYERS SQUIBB COMPANY-15474299

PATIENT
  Age: 38 Year
  Sex: Female
  Weight: 69 kg

DRUGS (8)
  1. SPRYCEL [Suspect]
     Indication: CHRONIC MYELOID LEUKAEMIA
     Dates: start: 200708
  2. ZOFRAN [Concomitant]
  3. COMPAZINE [Concomitant]
  4. VITAMIN D [Concomitant]
  5. CALCIUM [Concomitant]
  6. PREDNISONE [Concomitant]
  7. IBUPROFEN [Concomitant]
  8. MULTIVITAMIN [Concomitant]

REACTIONS (11)
  - Dermatitis contact [Not Recovered/Not Resolved]
  - Nausea [Unknown]
  - Vomiting [Unknown]
  - Gastroenteritis [Unknown]
  - White blood cell count decreased [Unknown]
  - Anaemia [Unknown]
  - Fluid retention [Unknown]
  - Pleural effusion [Unknown]
  - Blister [Unknown]
  - Fatigue [Unknown]
  - Rash [Unknown]
